FAERS Safety Report 18776347 (Version 1)
Quarter: 2021Q1

REPORT INFORMATION
  Report Type: Spontaneous
  Country: NO (occurrence: NO)
  Receive Date: 20210122
  Receipt Date: 20210122
  Transmission Date: 20210419
  Serious: Yes (Other)
  Sender: FDA-Public Use
  Company Number: NVSC2021NO011107

PATIENT
  Age: 46 Year
  Sex: Female
  Weight: 57 kg

DRUGS (2)
  1. SANDIMMUN NEORAL [Suspect]
     Active Substance: CYCLOSPORINE
     Indication: ECZEMA
     Dosage: 100 MG, Q12H (100 MG 2 TIMES DAILY) (L04AD01 ? CIKLOSPORIN ? ONGOING TREATMENT)
     Route: 048
     Dates: start: 202010
  2. SOTALOL MYLAN [Concomitant]
     Active Substance: SOTALOL
     Indication: VENTRICULAR TACHYCARDIA
     Dosage: 40 MG, Q12H (40 MG 2 TIMES DAILY)(C07AA07 ? SOTALOL ? ONGOING TREATMENT)
     Route: 065
     Dates: start: 200211

REACTIONS (4)
  - Headache [Recovered/Resolved]
  - Hot flush [Not Recovered/Not Resolved]
  - Hypertension [Recovered/Resolved]
  - Night sweats [Not Recovered/Not Resolved]

NARRATIVE: CASE EVENT DATE: 202010
